FAERS Safety Report 8907540 (Version 3)
Quarter: 2012Q4

REPORT INFORMATION
  Report Type: 
  Country: US (occurrence: US)
  Receive Date: 20121114
  Receipt Date: 20121227
  Transmission Date: 20130627
  Serious: Yes (Hospitalization)
  Sender: FDA-Public Use
  Company Number: US-BIOGENIDEC-2012BI051884

PATIENT
  Age: 32 Year
  Sex: Female

DRUGS (1)
  1. AVONEX [Suspect]
     Indication: MULTIPLE SCLEROSIS
     Route: 030
     Dates: start: 20090427

REACTIONS (7)
  - Burns second degree [Recovered/Resolved]
  - Burns third degree [Recovered/Resolved]
  - Strabismus [Not Recovered/Not Resolved]
  - Back pain [Unknown]
  - Fall [Recovered/Resolved]
  - Infrequent bowel movements [Not Recovered/Not Resolved]
  - Headache [Recovered/Resolved]
